FAERS Safety Report 7490509-9 (Version None)
Quarter: 2011Q2

REPORT INFORMATION
  Report Type: 
  Country: None (occurrence: None)
  Receive Date: 20110519
  Receipt Date: 20110516
  Transmission Date: 20111010
  Serious: Yes (Other)
  Sender: FDA-Public Use
  Company Number: DE-SANOFI-AVENTIS-2011SA022715

PATIENT
  Age: 59 Year
  Sex: Female
  Weight: 55 kg

DRUGS (2)
  1. SPIRONOLACTONE [Concomitant]
     Route: 048
  2. LASIX [Suspect]
     Indication: ASCITES
     Route: 048
     Dates: start: 20110101

REACTIONS (15)
  - DYSPNOEA [None]
  - BLOOD URINE PRESENT [None]
  - HEART RATE INCREASED [None]
  - EPISTAXIS [None]
  - GASTROINTESTINAL DISORDER [None]
  - RESTLESSNESS [None]
  - CARDIOVASCULAR DISORDER [None]
  - DRUG INEFFECTIVE [None]
  - TACHYCARDIA [None]
  - PARALYSIS [None]
  - SOMNOLENCE [None]
  - CARDIAC DISORDER [None]
  - DIZZINESS [None]
  - DISORIENTATION [None]
  - HEADACHE [None]
